FAERS Safety Report 21831669 (Version 2)
Quarter: 2023Q1

REPORT INFORMATION
  Report Type: Spontaneous
  Country: CN (occurrence: None)
  Receive Date: 20230106
  Receipt Date: 20230117
  Transmission Date: 20230418
  Serious: Yes (Hospitalization)
  Sender: FDA-Public Use
  Company Number: 2023A001107

PATIENT
  Age: 79 Year
  Sex: Male

DRUGS (1)
  1. BUDESONIDE\FORMOTEROL\GLYCOPYRRONIUM [Suspect]
     Active Substance: BUDESONIDE\FORMOTEROL\GLYCOPYRRONIUM
     Indication: Chronic obstructive pulmonary disease
     Dosage: ONCE EVERY MORNING AND EVENING, TWO INHALATIONS EACH TIME
     Route: 055

REACTIONS (3)
  - Chronic obstructive pulmonary disease [Unknown]
  - Wrong technique in device usage process [Unknown]
  - Device malfunction [Unknown]
